FAERS Safety Report 14543780 (Version 1)
Quarter: 2018Q1

REPORT INFORMATION
  Report Type: Spontaneous
  Country: GB (occurrence: GB)
  Receive Date: 20180216
  Receipt Date: 20180216
  Transmission Date: 20180509
  Serious: Yes (Hospitalization, Disabling)
  Sender: FDA-Public Use
  Company Number: GB-TEVA-2018-GB-857884

PATIENT
  Age: 64 Year
  Sex: Female

DRUGS (17)
  1. LORAZEPAM. [Concomitant]
     Active Substance: LORAZEPAM
     Dosage: ONLY TWO DOSES ADMINISTERED
     Dates: start: 20170814
  2. CALCIUM AND COLECALCIFEROL [Concomitant]
  3. MIRTAZAPINE. [Suspect]
     Active Substance: MIRTAZAPINE
     Dosage: 15 MILLIGRAM DAILY; NIGHT
     Dates: start: 20170728, end: 20170814
  4. HALOPERIDOL. [Concomitant]
     Active Substance: HALOPERIDOL
     Dosage: 500 UG TWICE A DAY AS REQUIRED (ONLY ONE DOSE ADMINISTERED)
     Dates: start: 20170815
  5. MULTIVITAMIN [Concomitant]
     Active Substance: VITAMINS
  6. FOLIC ACID. [Concomitant]
     Active Substance: FOLIC ACID
     Dosage: 5 MILLIGRAM DAILY;
  7. OLANZAPINE. [Concomitant]
     Active Substance: OLANZAPINE
     Dosage: 20 MILLIGRAM DAILY; AT NIGHT
  8. FERROUS SULFATE. [Concomitant]
     Active Substance: FERROUS SULFATE
     Dosage: 600 MILLIGRAM DAILY;
  9. SIMVASTATIN. [Concomitant]
     Active Substance: SIMVASTATIN
     Dosage: 40 MILLIGRAM DAILY; NIGHT
  10. PROCYCLIDINE [Concomitant]
     Active Substance: PROCYCLIDINE
     Dosage: 10 MILLIGRAM DAILY; REDUCED TO ONCE DAILY 8/7/2017
  11. ZOPICLONE [Concomitant]
     Active Substance: ZOPICLONE
     Dosage: 7.5 MILLIGRAM DAILY; NIGHT
  12. CEFALEXIN [Concomitant]
     Active Substance: CEPHALEXIN
     Indication: URINARY TRACT INFECTION
     Dosage: 1500 MILLIGRAM DAILY;
     Dates: start: 20170704, end: 20170717
  13. CLOMIPRAMINE [Concomitant]
     Active Substance: CLOMIPRAMINE
     Dosage: 100MG MORNING + 150MG NIGHT?DOSE REDUCED TO 150MG 1 X NIGHT 16/8/17
  14. WARFARIN [Concomitant]
     Active Substance: WARFARIN
     Dosage: 1MG MONDAY AND THURSDAY, 2MG REST OF THE WEEK
  15. VITAMIN B COMPOUND STRONG [Concomitant]
     Dosage: 1 DOSAGE FORMS DAILY;
  16. EVACAL D3 CHEWABLE [Concomitant]
     Dosage: 2 DOSAGE FORMS DAILY; 1500MG/400UNIT
  17. THIAMINE. [Concomitant]
     Active Substance: THIAMINE
     Dosage: 200 MILLIGRAM DAILY;

REACTIONS (5)
  - Confusional state [Unknown]
  - Fall [Unknown]
  - Mania [Recovered/Resolved]
  - Pressure of speech [Recovered/Resolved]
  - Flight of ideas [Recovered/Resolved]
